FAERS Safety Report 11093348 (Version 1)
Quarter: 2015Q2

REPORT INFORMATION
  Report Type: Spontaneous
  Country: IL (occurrence: IL)
  Receive Date: 20150506
  Receipt Date: 20150506
  Transmission Date: 20150821
  Serious: Yes (Hospitalization, Other)
  Sender: FDA-Public Use
  Company Number: IL-ROCHE-1563866

PATIENT
  Age: 78 Year
  Sex: Male

DRUGS (4)
  1. LOSEC [Concomitant]
     Active Substance: OMEPRAZOLE
  2. INSULIN [Concomitant]
     Active Substance: INSULIN NOS
  3. ALLORIL [Concomitant]
  4. GAZYVA [Suspect]
     Active Substance: OBINUTUZUMAB
     Indication: CHRONIC LYMPHOCYTIC LEUKAEMIA
     Route: 042

REACTIONS (3)
  - Tumour lysis syndrome [Recovered/Resolved]
  - Thrombocytopenia [Recovered/Resolved with Sequelae]
  - Renal impairment [Recovered/Resolved]
